FAERS Safety Report 9975903 (Version 1)
Quarter: 2014Q1

REPORT INFORMATION
  Report Type: Spontaneous
  Country: US (occurrence: US)
  Receive Date: 20140306
  Receipt Date: 20140306
  Transmission Date: 20141002
  Serious: No
  Sender: FDA-Public Use
  Company Number: US-PFIZER INC-2014060797

PATIENT
  Sex: Female

DRUGS (1)
  1. PROTONIX [Suspect]
     Dosage: 40 MG, 1X/DAY
     Route: 048
     Dates: start: 20140220

REACTIONS (1)
  - Drug hypersensitivity [Unknown]
